FAERS Safety Report 4516915-X (Version None)
Quarter: 2004Q4

REPORT INFORMATION
  Report Type: 
  Country: None (occurrence: None)
  Receive Date: 20041130
  Receipt Date: 20041124
  Transmission Date: 20050328
  Serious: Yes (Hospitalization)
  Sender: FDA-Public Use
  Company Number: 200413218GDS

PATIENT

DRUGS (1)
  1. ACETYLSALICYLIC ACID SRT [Suspect]

REACTIONS (19)
  - ACUTE TONSILLITIS [None]
  - AGRANULOCYTOSIS [None]
  - ARTHRITIS [None]
  - BACTERAEMIA [None]
  - BACTERIAL INFECTION [None]
  - BLOOD CULTURE POSITIVE [None]
  - CANDIDIASIS [None]
  - CARDIAC FAILURE [None]
  - CEREBRAL ISCHAEMIA [None]
  - CHOLECYSTITIS [None]
  - INFECTION [None]
  - PHARYNGOLARYNGEAL PAIN [None]
  - PNEUMONIA [None]
  - PSEUDOMONAS INFECTION [None]
  - PYELONEPHRITIS ACUTE [None]
  - PYREXIA [None]
  - SEPTIC SHOCK [None]
  - SOFT TISSUE INFECTION [None]
  - STAPHYLOCOCCAL INFECTION [None]
